FAERS Safety Report 22363073 (Version 1)
Quarter: 2023Q2

REPORT INFORMATION
  Report Type: Spontaneous
  Country: US (occurrence: US)
  Receive Date: 20230525
  Receipt Date: 20230525
  Transmission Date: 20230722
  Serious: No
  Sender: FDA-Public Use
  Company Number: US-UCBSA-2022037780

PATIENT
  Sex: Female

DRUGS (8)
  1. CIMZIA [Suspect]
     Active Substance: CERTOLIZUMAB PEGOL
     Indication: Spinal osteoarthritis
     Dosage: 200 MILLIGRAM, EV 4 WEEKS
     Route: 058
  2. LINZESS [Concomitant]
     Active Substance: LINACLOTIDE
     Indication: Product used for unknown indication
  3. CETIRIZINE HCL [Concomitant]
     Active Substance: CETIRIZINE HYDROCHLORIDE
     Indication: Product used for unknown indication
  4. FISH OIL [Concomitant]
     Active Substance: FISH OIL
     Indication: Product used for unknown indication
  5. CHERRY [Concomitant]
     Active Substance: CHERRY
     Indication: Product used for unknown indication
  6. VITAMIN D3 [Concomitant]
     Active Substance: CHOLECALCIFEROL
     Indication: Product used for unknown indication
  7. THEANINE [Concomitant]
     Active Substance: THEANINE
     Indication: Product used for unknown indication
  8. NAPROXEN [Concomitant]
     Active Substance: NAPROXEN
     Indication: Product used for unknown indication

REACTIONS (3)
  - Product dose omission issue [Unknown]
  - Product use in unapproved indication [Unknown]
  - Product use issue [Unknown]
